FAERS Safety Report 20645346 (Version 1)
Quarter: 2022Q1

REPORT INFORMATION
  Report Type: Spontaneous
  Country: US (occurrence: None)
  Receive Date: 20220328
  Receipt Date: 20220328
  Transmission Date: 20220424
  Serious: No
  Sender: FDA-Public Use
  Company Number: None

PATIENT
  Age: 35 Year
  Sex: Female

DRUGS (1)
  1. TACROLIMUS 0.1% [Suspect]
     Active Substance: TACROLIMUS
     Indication: Dermatitis atopic
     Dosage: OTHER QUANTITY : 1 DROP(S);?FREQUENCY : TWICE A DAY;?
     Route: 061

REACTIONS (5)
  - Paraesthesia [None]
  - Hypoaesthesia [None]
  - Erythema [None]
  - Skin irritation [None]
  - Skin induration [None]

NARRATIVE: CASE EVENT DATE: 20220325
